FAERS Safety Report 9235163 (Version 2)
Quarter: 2013Q2

REPORT INFORMATION
  Report Type: Spontaneous
  Country: US (occurrence: US)
  Receive Date: 20130416
  Receipt Date: 20130528
  Transmission Date: 20140414
  Serious: No
  Sender: FDA-Public Use
  Company Number: US-009507513-1304USA006536

PATIENT
  Age: 28 Year
  Sex: Female
  Weight: 50.34 kg

DRUGS (2)
  1. IMPLANON [Suspect]
     Indication: CONTRACEPTION
     Dosage: 1 ROD EVERY 3 YEARS
     Route: 059
     Dates: start: 20100323
  2. BUTALBITAL [Concomitant]

REACTIONS (1)
  - Myalgia [Not Recovered/Not Resolved]
